FAERS Safety Report 4610900-5 (Version None)
Quarter: 2005Q1

REPORT INFORMATION
  Report Type: 
  Country: None (occurrence: None)
  Receive Date: 20050317
  Receipt Date: 20050305
  Transmission Date: 20050727
  Serious: Yes (Hospitalization)
  Sender: FDA-Public Use
  Company Number: 200510724JP

PATIENT
  Age: 47 Year
  Sex: Male
  Weight: 52.5 kg

DRUGS (5)
  1. ARAVA [Suspect]
     Indication: RHEUMATOID ARTHRITIS
     Route: 048
     Dates: start: 20040805, end: 20050305
  2. BLOPRESS [Concomitant]
     Dates: start: 20041209
  3. HYPEN [Concomitant]
  4. CYTOTEC [Concomitant]
  5. PREDONINE [Concomitant]

REACTIONS (4)
  - ANURIA [None]
  - C-REACTIVE PROTEIN INCREASED [None]
  - PYREXIA [None]
  - RENAL FAILURE ACUTE [None]
